FAERS Safety Report 7860397-7 (Version None)
Quarter: 2011Q4

REPORT INFORMATION
  Report Type: 
  Country: None (occurrence: None)
  Receive Date: 20111027
  Receipt Date: 20111018
  Transmission Date: 20120403
  Serious: Yes (Other)
  Sender: FDA-Public Use
  Company Number: PHHY2011AR92316

PATIENT
  Sex: Female

DRUGS (2)
  1. RASILEZ [Suspect]
  2. GALVUS [Suspect]
     Indication: DIABETES MELLITUS
     Dosage: 1 DF (50 MG), DAILY

REACTIONS (3)
  - FALL [None]
  - SYNCOPE [None]
  - FEELING ABNORMAL [None]
